FAERS Safety Report 5098724-9 (Version None)
Quarter: 2006Q3

REPORT INFORMATION
  Report Type: 
  Country: None (occurrence: None)
  Receive Date: 20060907
  Receipt Date: 20050617
  Transmission Date: 20061208
  Serious: Yes (Other)
  Sender: FDA-Public Use
  Company Number: HQWYE612422JUN05

PATIENT
  Sex: Female

DRUGS (3)
  1. ENBREL [Suspect]
     Indication: RHEUMATOID ARTHRITIS
     Dosage: UNKNOWN
     Dates: start: 19990621
  2. ENBREL [Suspect]
     Dosage: UNKNOWN
  3. ENBREL [Suspect]
     Dosage: UNKNOWN

REACTIONS (2)
  - CEREBRAL HAEMORRHAGE [None]
  - SKIN REACTION [None]
